FAERS Safety Report 8565930-8 (Version None)
Quarter: 2012Q3

REPORT INFORMATION
  Report Type: 
  Country: None (occurrence: None)
  Receive Date: 20120803
  Receipt Date: 20110823
  Transmission Date: 20120928
  Serious: No
  Sender: FDA-Public Use
  Company Number: US-ABBOTT-11P-163-0848659-00

PATIENT
  Sex: Female
  Weight: 83.99 kg

DRUGS (2)
  1. NIASPAN [Suspect]
     Indication: HIGH DENSITY LIPOPROTEIN DECREASED
  2. NIASPAN [Suspect]
     Indication: BLOOD CHOLESTEROL INCREASED
     Dosage: AT NIGHT
     Dates: start: 20110804, end: 20110820

REACTIONS (8)
  - HEAD INJURY [None]
  - EYE SWELLING [None]
  - VOMITING [None]
  - FALL [None]
  - BACK PAIN [None]
  - DIZZINESS [None]
  - FEELING HOT [None]
  - HYPOAESTHESIA [None]
